FAERS Safety Report 16010152 (Version 1)
Quarter: 2019Q1

REPORT INFORMATION
  Report Type: Spontaneous
  Country: JP (occurrence: JP)
  Receive Date: 20190225
  Receipt Date: 20190225
  Transmission Date: 20190418
  Serious: Yes (Death)
  Sender: FDA-Public Use
  Company Number: JP-ROCHE-2270578

PATIENT
  Age: 65 Year
  Sex: Female

DRUGS (18)
  1. MAGMITT [Concomitant]
     Active Substance: MAGNESIUM OXIDE
  2. XOFLUZA [Suspect]
     Active Substance: BALOXAVIR MARBOXIL
     Indication: INFLUENZA
     Route: 048
     Dates: start: 20190120, end: 20190120
  3. ENDOXAN [Suspect]
     Active Substance: CYCLOPHOSPHAMIDE
     Indication: BREAST CANCER
     Route: 065
     Dates: start: 20190129
  4. LANSOPRAZOLE. [Concomitant]
     Active Substance: LANSOPRAZOLE
  5. LYRICA [Concomitant]
     Active Substance: PREGABALIN
  6. DEXART [Concomitant]
     Active Substance: DEXAMETHASONE SODIUM PHOSPHATE
  7. TEPRENONE [Concomitant]
     Active Substance: TEPRENONE
  8. NEORESTAR [Concomitant]
     Active Substance: CHLORPHENIRAMINE MALEATE
  9. ALOXI [Concomitant]
     Active Substance: PALONOSETRON HYDROCHLORIDE
  10. BROTIZOLAM [Concomitant]
     Active Substance: BROTIZOLAM
  11. FARMORUBICIN [Concomitant]
     Active Substance: EPIRUBICIN HYDROCHLORIDE
  12. SENNOSIDE [Concomitant]
     Active Substance: SENNOSIDES
  13. TRAMAL [Concomitant]
     Active Substance: TRAMADOL
  14. SPIRONOLACTONE. [Concomitant]
     Active Substance: SPIRONOLACTONE
  15. ZOMETA [Concomitant]
     Active Substance: ZOLEDRONIC ACID
  16. NAUZELIN [Concomitant]
     Active Substance: DOMPERIDONE
  17. ENDOXAN [Suspect]
     Active Substance: CYCLOPHOSPHAMIDE
     Route: 065
     Dates: start: 20190201
  18. SYMPROIC [Concomitant]
     Active Substance: NALDEMEDINE

REACTIONS (1)
  - Lung disorder [Fatal]

NARRATIVE: CASE EVENT DATE: 20190205
